FAERS Safety Report 9820287 (Version 1)
Quarter: 2013Q4

REPORT INFORMATION
  Report Type: Spontaneous
  Country: US (occurrence: None)
  Receive Date: 20131021
  Receipt Date: 20131021
  Transmission Date: 20140711
  Serious: Yes (Other)
  Sender: FDA-Public Use
  Company Number: ALL1-2013-03690

PATIENT
  Age: 12 Year
  Sex: Female

DRUGS (2)
  1. VYVANSE [Suspect]
     Indication: ATTENTION DEFICIT/HYPERACTIVITY DISORDER
     Route: 048
  2. RISPERDAL (RISPERIDONE) [Concomitant]

REACTIONS (7)
  - Hallucinations, mixed [None]
  - Growth retardation [None]
  - Micturition frequency decreased [None]
  - Vision blurred [None]
  - Anxiety [None]
  - Irritability [None]
  - Dizziness [None]
